FAERS Safety Report 12418179 (Version 1)
Quarter: 2016Q2

REPORT INFORMATION
  Report Type: Spontaneous
  Country: US (occurrence: US)
  Receive Date: 20160531
  Receipt Date: 20160531
  Transmission Date: 20160815
  Serious: Yes (Hospitalization, Other)
  Sender: FDA-Public Use
  Company Number: US-ZYDUS-011188

PATIENT
  Age: 50 Year
  Sex: Male

DRUGS (3)
  1. OLANZAPINE. [Concomitant]
     Active Substance: OLANZAPINE
     Indication: PRODUCT USED FOR UNKNOWN INDICATION
     Route: 065
  2. METHYLPREDNISOLONE. [Concomitant]
     Active Substance: METHYLPREDNISOLONE
     Indication: SEIZURE
     Route: 065
  3. LEVETIRACETAM. [Suspect]
     Active Substance: LEVETIRACETAM
     Indication: SEIZURE
     Route: 065

REACTIONS (9)
  - Acute hepatic failure [Unknown]
  - Vomiting [Unknown]
  - Diarrhoea [Unknown]
  - Confusional state [Unknown]
  - Hepatic encephalopathy [Unknown]
  - Nausea [Unknown]
  - Disturbance in attention [Unknown]
  - Jaundice [Unknown]
  - Memory impairment [Unknown]
